FAERS Safety Report 17434948 (Version 1)
Quarter: 2020Q1

REPORT INFORMATION
  Report Type: Spontaneous
  Country: US (occurrence: US)
  Receive Date: 20200219
  Receipt Date: 20200219
  Transmission Date: 20200409
  Serious: Yes (Other)
  Sender: FDA-Public Use
  Company Number: US-PFIZER INC-2020072083

PATIENT
  Age: 67 Year
  Sex: Female
  Weight: 87.54 kg

DRUGS (1)
  1. DETROL LA [Suspect]
     Active Substance: TOLTERODINE TARTRATE
     Dosage: 4 MG, UNK
     Dates: start: 202001, end: 202001

REACTIONS (1)
  - Drug dependence [Unknown]
